FAERS Safety Report 5653749-7 (Version None)
Quarter: 2008Q1

REPORT INFORMATION
  Report Type: 
  Country: None (occurrence: None)
  Receive Date: 20080205
  Receipt Date: 20070321
  Transmission Date: 20080703
  Serious: Yes (Disabling)
  Sender: FDA-Public Use
  Company Number: 488668

PATIENT
  Age: 72 Year
  Sex: Female
  Weight: 81.5 kg

DRUGS (6)
  1. BONIVA [Suspect]
     Indication: OSTEOPOROSIS
     Dosage: 3 MG   INTRAVENOUS
     Route: 042
     Dates: start: 20060913, end: 20060913
  2. SYNTHROID [Concomitant]
  3. OGEN [Concomitant]
  4. HYDROCHLOROTHIAZIDE [Concomitant]
  5. CITRACAL (CALCIUM CITRATE) [Concomitant]
  6. MULTIVITAMIN NOS (MULTIVITAMIN NOS) [Concomitant]

REACTIONS (23)
  - ARTHRALGIA [None]
  - BLOOD PRESSURE [None]
  - BONE PAIN [None]
  - COMPRESSION FRACTURE [None]
  - CONDITION AGGRAVATED [None]
  - CONTUSION [None]
  - DEPRESSION [None]
  - DIARRHOEA [None]
  - EXOSTOSIS [None]
  - FAECAL INCONTINENCE [None]
  - FRACTURE [None]
  - GASTROOESOPHAGEAL REFLUX DISEASE [None]
  - HYPERTENSION [None]
  - ILL-DEFINED DISORDER [None]
  - MUSCULAR WEAKNESS [None]
  - MUSCULOSKELETAL STIFFNESS [None]
  - MYALGIA [None]
  - OEDEMA PERIPHERAL [None]
  - OSTEOARTHRITIS [None]
  - PAIN [None]
  - SCIATICA [None]
  - URINE ODOUR ABNORMAL [None]
  - VAGINAL DISCHARGE [None]
